FAERS Safety Report 5640557-6 (Version None)
Quarter: 2008Q1

REPORT INFORMATION
  Report Type: 
  Country: None (occurrence: None)
  Receive Date: 20080131
  Receipt Date: 20071108
  Transmission Date: 20080703
  Serious: No
  Sender: FDA-Public Use
  Company Number: 163-21880-07110498

PATIENT
  Age: 55 Year
  Sex: Male
  Weight: 89.3586 kg

DRUGS (9)
  1. REVLIMID [Suspect]
     Indication: AMYLOIDOSIS
     Dosage: 25 MG, DAILY FOR 21 DAYS, ORAL
     Route: 048
     Dates: start: 20071015
  2. LASIX [Concomitant]
  3. ZAROXOLYN [Concomitant]
  4. LIPITOR [Concomitant]
  5. MULTIVITAMIN [Concomitant]
  6. ASCORBIC ACID [Concomitant]
  7. VITAMIN E [Concomitant]
  8. ACTOS [Concomitant]
  9. METFORMIN HCL [Concomitant]

REACTIONS (2)
  - CONSTIPATION [None]
  - MUSCLE SPASMS [None]
